FAERS Safety Report 21028523 (Version 1)
Quarter: 2022Q2

REPORT INFORMATION
  Report Type: Other
  Country: BE (occurrence: None)
  Receive Date: 20220630
  Receipt Date: 20220630
  Transmission Date: 20220721
  Serious: Yes (Hospitalization, Other)
  Sender: FDA-Public Use
  Company Number: BE-Merck Healthcare KGaA-9331791

PATIENT
  Age: 48 Year
  Sex: Male

DRUGS (3)
  1. INTERFERON BETA-1A [Suspect]
     Active Substance: INTERFERON BETA-1A
     Indication: Relapsing-remitting multiple sclerosis
  2. LEVETIRACETAM [Concomitant]
     Active Substance: LEVETIRACETAM
     Indication: Epilepsy
  3. AVONEX [Concomitant]
     Active Substance: INTERFERON BETA-1A
     Indication: Relapsing-remitting multiple sclerosis

REACTIONS (2)
  - Chronic kidney disease [Unknown]
  - Thrombotic microangiopathy [Recovered/Resolved]
